FAERS Safety Report 10588544 (Version 2)
Quarter: 2014Q4

REPORT INFORMATION
  Report Type: Spontaneous
  Country: US (occurrence: US)
  Receive Date: 20141117
  Receipt Date: 20141223
  Transmission Date: 20150529
  Serious: No
  Sender: FDA-Public Use
  Company Number: US-ELI_LILLY_AND_COMPANY-US201410008685

PATIENT
  Sex: Male

DRUGS (5)
  1. HUMALOG [Suspect]
     Active Substance: INSULIN LISPRO
     Dosage: 6 U, OTHER
     Route: 065
     Dates: start: 201403
  2. ACTOS [Concomitant]
     Active Substance: PIOGLITAZONE HYDROCHLORIDE
     Dosage: 30 MG, UNK
  3. HUMALOG [Suspect]
     Active Substance: INSULIN LISPRO
     Indication: TYPE 2 DIABETES MELLITUS
     Dosage: 6 U, OTHER
     Route: 065
     Dates: start: 201403
  4. GLIPIZIDE XL [Concomitant]
     Active Substance: GLIPIZIDE
     Dosage: 1 DF, UNK
  5. LEVEMIR [Concomitant]
     Active Substance: INSULIN DETEMIR
     Dosage: UNK
     Dates: start: 2011

REACTIONS (3)
  - Underdose [Unknown]
  - Drug dose omission [Unknown]
  - Blood glucose increased [Unknown]
